FAERS Safety Report 9372486 (Version 2)
Quarter: 2013Q3

REPORT INFORMATION
  Report Type: Report from Study
  Country: CA (occurrence: CA)
  Receive Date: 20130627
  Receipt Date: 20130701
  Transmission Date: 20140515
  Serious: Yes (Other)
  Sender: FDA-Public Use
  Company Number: CA-ROCHE-1230684

PATIENT
  Age: 59 Year
  Sex: Female
  Weight: 82 kg

DRUGS (6)
  1. AVASTIN [Suspect]
     Indication: GLIOBLASTOMA
     Route: 042
     Dates: start: 20130417, end: 20130527
  2. SOLU-MEDROL [Concomitant]
     Route: 042
     Dates: start: 20130417, end: 20130527
  3. INSULIN [Concomitant]
     Dosage: 18 UNITS AM AND 4UNITS PM 5PM
     Route: 065
  4. METFORMIN [Concomitant]
     Dosage: BEFORE MEAL
     Route: 065
  5. DECADRON [Concomitant]
     Route: 065
  6. RANITIDINE [Concomitant]

REACTIONS (4)
  - Disease progression [Unknown]
  - Neoplasm [Unknown]
  - Drug ineffective [Unknown]
  - Blood pressure increased [Recovering/Resolving]
